FAERS Safety Report 6318533-X (Version None)
Quarter: 2009Q3

REPORT INFORMATION
  Report Type: 
  Country: None (occurrence: None)
  Receive Date: 20090821
  Receipt Date: 20090811
  Transmission Date: 20100115
  Serious: Yes (Other)
  Sender: FDA-Public Use
  Company Number: PHHY2009MX33932

PATIENT
  Age: 73 Year
  Sex: Female

DRUGS (4)
  1. EXFORGE [Suspect]
     Indication: HYPERTENSION
     Dosage: 160/5 MG 2 TABLETS / DAY
     Route: 048
     Dates: start: 20090508
  2. EXFORGE [Suspect]
     Dosage: 160/10 MG 1 TABLET/DAY
     Route: 048
     Dates: start: 20090612, end: 20090807
  3. LOPRESSOR [Concomitant]
  4. AMIODARONE [Concomitant]

REACTIONS (4)
  - CARDIOMYOPATHY [None]
  - HYPERTENSION [None]
  - OEDEMA PERIPHERAL [None]
  - VENTRICULAR EXTRASYSTOLES [None]
